FAERS Safety Report 4284606-9 (Version None)
Quarter: 2004Q1

REPORT INFORMATION
  Report Type: 
  Country: None (occurrence: None)
  Receive Date: 20040130
  Receipt Date: 20040123
  Transmission Date: 20041129
  Serious: Yes (Hospitalization)
  Sender: FDA-Public Use
  Company Number: 200410152JP

PATIENT
  Age: 66 Year
  Sex: Male

DRUGS (1)
  1. GLIBENCLAMIDE (DAONIL) TABLETS [Suspect]
     Dosage: 2.5 MG/DAY PO
     Route: 048
     Dates: start: 20020501

REACTIONS (2)
  - OCULOMUCOCUTANEOUS SYNDROME [None]
  - STEVENS-JOHNSON SYNDROME [None]
